FAERS Safety Report 5879777-4 (Version None)
Quarter: 2008Q3

REPORT INFORMATION
  Report Type: 
  Country: None (occurrence: None)
  Receive Date: 20080912
  Receipt Date: 20080902
  Transmission Date: 20090109
  Serious: Yes (Hospitalization)
  Sender: FDA-Public Use
  Company Number: BR-ROCHE-584833

PATIENT
  Sex: Female
  Weight: 53 kg

DRUGS (5)
  1. XENICAL [Suspect]
     Dosage: STRENGTH AND FORMULATION 120 MG/CAPSULE
     Route: 048
     Dates: start: 20080501
  2. DILACORON [Concomitant]
     Dosage: STRENGTH AND FORMULATION REPORTED AS 240 MG/TABLET
     Route: 048
  3. SINERGEN [Concomitant]
     Dosage: START DATE REPORTED AS 2003 OR 2004 AMLODIPINE BESILATE 5 MG AND ENALAPRIL MALEATE 10 MG.
     Route: 048
  4. GLIFAGE [Concomitant]
     Route: 048
  5. SYNTHROID [Concomitant]
     Dosage: STRENGTH AND FORMULATION REPORTED AS 75 MCG/TABLET
     Route: 048

REACTIONS (1)
  - GALLBLADDER OPERATION [None]
